FAERS Safety Report 7944581-X (Version None)
Quarter: 2011Q4

REPORT INFORMATION
  Report Type: 
  Country: None (occurrence: None)
  Receive Date: 20111129
  Receipt Date: 20111115
  Transmission Date: 20120403
  Serious: Yes (Other)
  Sender: FDA-Public Use
  Company Number: CA-JNJFOC-20111110177

PATIENT
  Sex: Male
  Weight: 79.4 kg

DRUGS (8)
  1. REMICADE [Suspect]
     Dosage: 15TH INFUSION
     Dates: start: 20111115
  2. SOLU-CORTEF [Concomitant]
     Indication: PREMEDICATION
     Route: 042
  3. REMICADE [Suspect]
     Indication: CROHN'S DISEASE
     Dates: start: 20091124
  4. BENADRYL [Concomitant]
     Indication: PREMEDICATION
     Route: 048
  5. ACETAMINOPHEN [Concomitant]
     Indication: PREMEDICATION
     Route: 048
  6. ESCITALOPRAM [Concomitant]
     Route: 048
  7. MIRTAZAPINE [Concomitant]
     Route: 048
  8. CLONAZEPAM [Concomitant]
     Route: 048

REACTIONS (2)
  - HERPES SIMPLEX [None]
  - RASH PUSTULAR [None]
